FAERS Safety Report 8858009 (Version 1)
Quarter: 2012Q4

REPORT INFORMATION
  Report Type: 
  Country: US (occurrence: US)
  Receive Date: 20121024
  Receipt Date: 20121024
  Transmission Date: 20130627
  Serious: No
  Sender: FDA-Public Use
  Company Number: US-AMGEN-USASP2011068590

PATIENT
  Age: 64 Year
  Sex: Male
  Weight: 77.1 kg

DRUGS (7)
  1. ENBREL [Suspect]
     Indication: PSORIASIS
     Dosage: 50 mg, 2 times/wk
     Route: 058
  2. RELAFEN [Concomitant]
     Dosage: 500 mg, UNK
     Route: 048
  3. NEURONTIN [Concomitant]
     Dosage: 300 mg, UNK
     Route: 048
  4. FINASTERIDE [Concomitant]
     Dosage: 5 mg, UNK
     Route: 048
  5. DOXAZOSIN [Concomitant]
     Dosage: 1 mg, UNK
     Route: 048
  6. PRILOSEC                           /00661201/ [Concomitant]
     Dosage: 20 mg, UNK
     Route: 048
  7. MORPHINE SULFATE [Concomitant]
     Dosage: 80 mg, UNK
     Route: 048

REACTIONS (1)
  - Furuncle [Unknown]
